FAERS Safety Report 4997489-6 (Version None)
Quarter: 2006Q2

REPORT INFORMATION
  Report Type: 
  Country: None (occurrence: None)
  Receive Date: 20060509
  Receipt Date: 20060504
  Transmission Date: 20061013
  Serious: Yes (Other)
  Sender: FDA-Public Use
  Company Number: US-MERCK-0605USA01071

PATIENT
  Age: 60 Year
  Sex: Female
  Weight: 71 kg

DRUGS (9)
  1. VIOXX [Suspect]
     Indication: PAIN
     Route: 048
     Dates: start: 20010301, end: 20041001
  2. PREMARIN [Concomitant]
     Route: 065
  3. ZOLOFT [Concomitant]
     Route: 065
  4. TIZANIDINE HYDROCHLORIDE [Concomitant]
     Route: 065
  5. SKELAXIN [Concomitant]
     Route: 065
  6. COLCHICINE [Concomitant]
     Route: 065
  7. CLARITIN [Concomitant]
     Route: 065
  8. AMOXICILLIN [Concomitant]
     Route: 065
  9. NEURONTIN [Concomitant]
     Route: 065

REACTIONS (1)
  - CEREBROVASCULAR ACCIDENT [None]
